FAERS Safety Report 18227936 (Version 1)
Quarter: 2020Q3

REPORT INFORMATION
  Report Type: Report from Study
  Country: TW (occurrence: TW)
  Receive Date: 20200903
  Receipt Date: 20200903
  Transmission Date: 20201103
  Serious: Yes (Death, Other)
  Sender: FDA-Public Use
  Company Number: TW-PFIZER INC-2020332614

PATIENT

DRUGS (2)
  1. DEXAMETHASONE. [Concomitant]
     Active Substance: DEXAMETHASONE
     Indication: PROPHYLAXIS
     Dosage: 8 MG, CYCLIC, 2X/DAY (FOR 3 DAYS, BEGINNING 1 DAY BEFORE CHEMOTHERAPY)
     Route: 048
  2. DOCETAXEL. [Suspect]
     Active Substance: DOCETAXEL
     Indication: NON-SMALL CELL LUNG CANCER
     Dosage: 100 MG/M2, EVERY 3 WEEKS, (FOR 1H EVERY 3 WEEKS FOR UP TO NINE CYCLES).
     Route: 042

REACTIONS (2)
  - Haemoptysis [Fatal]
  - Tumour haemorrhage [Fatal]
